FAERS Safety Report 19147114 (Version 2)
Quarter: 2021Q2

REPORT INFORMATION
  Report Type: Spontaneous
  Country: NP (occurrence: NP)
  Receive Date: 20210416
  Receipt Date: 20210426
  Transmission Date: 20210717
  Serious: Yes (Life-Threatening, Hospitalization, Other)
  Sender: FDA-Public Use
  Company Number: NP-BAYER-2021-122751

PATIENT
  Age: 5 Year
  Sex: Male

DRUGS (2)
  1. CIPROFLOXACIN. [Suspect]
     Active Substance: CIPROFLOXACIN
     Indication: TYPHOID FEVER
     Dosage: THE PATIENT ONLY TOOK A SINGLE DOSE AS PER THE GUARDIAN
     Route: 048
  2. CIPROFLOXACIN. [Suspect]
     Active Substance: CIPROFLOXACIN
     Indication: TYPHOID FEVER
     Dosage: UNK
     Route: 048

REACTIONS (10)
  - Respiratory acidosis [Not Recovered/Not Resolved]
  - Respiratory distress [Not Recovered/Not Resolved]
  - Clubbing [Not Recovered/Not Resolved]
  - Eyelid disorder [Unknown]
  - Symblepharon [Unknown]
  - Obliterative bronchiolitis [Not Recovered/Not Resolved]
  - Respiratory failure [Recovered/Resolved]
  - Respiratory failure [Not Recovered/Not Resolved]
  - Type IV hypersensitivity reaction [Not Recovered/Not Resolved]
  - Toxic epidermal necrolysis [Recovered/Resolved with Sequelae]
